FAERS Safety Report 9155895 (Version 1)
Quarter: 2013Q1

REPORT INFORMATION
  Report Type: Spontaneous
  Country: US (occurrence: US)
  Receive Date: 20130311
  Receipt Date: 20130311
  Transmission Date: 20140127
  Serious: Yes (Other)
  Sender: FDA-Public Use
  Company Number: US-PFIZER INC-2013078537

PATIENT
  Age: 70 Year
  Sex: Male
  Weight: 103.4 kg

DRUGS (3)
  1. GLIPIZIDE [Suspect]
     Indication: DIABETES MELLITUS
     Dosage: 10 MG, 2X/DAY
     Route: 048
     Dates: start: 2005
  2. METFORMIN HCL [Suspect]
     Indication: DIABETES MELLITUS
     Dosage: 500 MG, 2X/DAY
     Route: 048
     Dates: start: 2010, end: 2010
  3. LOSARTAN [Concomitant]
     Indication: HYPERTENSION
     Dosage: 25 MG, UNK

REACTIONS (6)
  - Blindness [Unknown]
  - Eye disorder [Unknown]
  - Visual impairment [Unknown]
  - Diplopia [Unknown]
  - Malaise [Unknown]
  - Dizziness [Recovered/Resolved]
